FAERS Safety Report 5228222-0 (Version None)
Quarter: 2007Q1

REPORT INFORMATION
  Report Type: 
  Country: None (occurrence: None)
  Receive Date: 20070130
  Receipt Date: 20070118
  Transmission Date: 20070707
  Serious: Yes (Other)
  Sender: FDA-Public Use
  Company Number: 2007RR-05412

PATIENT
  Age: 74 Year
  Sex: Male

DRUGS (2)
  1. FRUSEMIDE (FUROSEMIDE) UNKNOWN [Suspect]
     Indication: HYPERTENSION
  2. VALSARTAN [Suspect]
     Indication: DRUG USE FOR UNKNOWN INDICATION
     Dosage: 80 MG

REACTIONS (10)
  - BLINDNESS [None]
  - BLINDNESS UNILATERAL [None]
  - CEREBRAL ISCHAEMIA [None]
  - CHARLES BONNET SYNDROME [None]
  - DRUG INTERACTION [None]
  - HALLUCINATION, VISUAL [None]
  - HYPERTENSION [None]
  - HYPOPERFUSION [None]
  - MOVEMENT DISORDER [None]
  - RETINAL ARTERY OCCLUSION [None]
